FAERS Safety Report 19584622 (Version 2)
Quarter: 2021Q4

REPORT INFORMATION
  Report Type: Report from Study
  Country: CO (occurrence: CO)
  Receive Date: 20210720
  Receipt Date: 20211124
  Transmission Date: 20220303
  Serious: Yes (Other)
  Sender: FDA-Public Use
  Company Number: CO-NOVARTISPH-PHHY2019CO222764

PATIENT
  Age: 10 Year
  Sex: Male
  Weight: 34 kg

DRUGS (3)
  1. OMNITROPE [Suspect]
     Active Substance: SOMATROPIN
     Indication: Growth disorder
     Dosage: 1.1 MG, QD
     Route: 058
     Dates: start: 201601
  2. OMNITROPE [Suspect]
     Active Substance: SOMATROPIN
     Indication: Toxic shock syndrome
  3. OMNITROPE [Suspect]
     Active Substance: SOMATROPIN
     Indication: Growth hormone deficiency

REACTIONS (8)
  - Osteomyelitis [Recovered/Resolved]
  - Pain in extremity [Unknown]
  - Expired device used [Recovered/Resolved]
  - Device issue [Unknown]
  - Incorrect dose administered by device [Unknown]
  - Device failure [Unknown]
  - Wrong technique in device usage process [Unknown]
  - Product use in unapproved indication [Unknown]

NARRATIVE: CASE EVENT DATE: 20190101
